FAERS Safety Report 8862431 (Version 1)
Quarter: 2012Q4

REPORT INFORMATION
  Report Type: 
  Country: US (occurrence: US)
  Receive Date: 20121026
  Receipt Date: 20121026
  Transmission Date: 20130627
  Serious: Yes (Life-Threatening, Hospitalization, Other)
  Sender: FDA-Public Use
  Company Number: PHEH2012US019896

PATIENT
  Age: 53 Year
  Sex: Female

DRUGS (6)
  1. TASIGNA [Suspect]
     Indication: LEUKAEMIA
     Dosage: 300 mg, Q12H
     Route: 048
     Dates: start: 20120821, end: 20120924
  2. TYLENOL [Concomitant]
     Indication: PAIN
     Dosage: 650 mg, BID
     Dates: start: 2010, end: 20120921
  3. ALLOPURINOL [Concomitant]
     Indication: TUMOUR LYSIS SYNDROME
     Dosage: 300 mg, daily
     Dates: start: 20120813, end: 20120921
  4. LOSARTAN [Concomitant]
     Dosage: 50 mg, UNK
     Dates: end: 20120921
  5. METFORMIN [Concomitant]
     Indication: DIABETES MELLITUS
     Dosage: 1000 mg, BID
  6. LANTUS [Concomitant]
     Indication: DIABETES MELLITUS
     Dosage: 40 mg, daily
     Dates: end: 20120920

REACTIONS (4)
  - Cardiac failure congestive [Recovered/Resolved]
  - Respiratory failure [Recovered/Resolved]
  - Pulmonary oedema [Recovered/Resolved]
  - Pericardial effusion [Recovered/Resolved]
